FAERS Safety Report 25346919 (Version 1)
Quarter: 2025Q2

REPORT INFORMATION
  Report Type: Spontaneous
  Country: US (occurrence: None)
  Receive Date: 20250521
  Receipt Date: 20250521
  Transmission Date: 20250717
  Serious: Yes (Hospitalization)
  Sender: FDA-CTU
  Company Number: None

PATIENT
  Age: 77 Year
  Sex: Male
  Weight: 91 kg

DRUGS (1)
  1. HYDROCHLOROTHIAZIDE [Suspect]
     Active Substance: HYDROCHLOROTHIAZIDE
     Indication: Hypertension
     Dates: end: 20250301

REACTIONS (5)
  - Confusional state [None]
  - Hyponatraemia [None]
  - Hypokalaemia [None]
  - Hypomagnesaemia [None]
  - Therapy change [None]

NARRATIVE: CASE EVENT DATE: 20250301
